APPROVED DRUG PRODUCT: MEMANTINE HYDROCHLORIDE
Active Ingredient: MEMANTINE HYDROCHLORIDE
Strength: 10MG
Dosage Form/Route: TABLET;ORAL
Application: A090044 | Product #002
Applicant: ORBION PHARMACEUTICALS PRIVATE LTD
Approved: Mar 12, 2012 | RLD: No | RS: No | Type: DISCN